FAERS Safety Report 7265623-3 (Version None)
Quarter: 2011Q1

REPORT INFORMATION
  Report Type: 
  Country: None (occurrence: None)
  Receive Date: 20110131
  Receipt Date: 20101216
  Transmission Date: 20110831
  Serious: Yes (Hospitalization)
  Sender: FDA-Public Use
  Company Number: US-BAYER-201023553NA

PATIENT
  Sex: Female
  Weight: 61 kg

DRUGS (8)
  1. YAZ [Suspect]
     Indication: MENORRHAGIA
  2. IBUPROFEN [Concomitant]
  3. YAZ [Suspect]
     Indication: CONTRACEPTION
  4. CIPROFLOXACIN [Concomitant]
  5. HYDROCODONE [Concomitant]
  6. TRAMADOL HCL [Concomitant]
  7. PHENERGAN HCL [Concomitant]
  8. YAZ [Suspect]
     Indication: DYSMENORRHOEA
     Dosage: UNK UNK, QD
     Route: 048
     Dates: start: 20070731, end: 20080511

REACTIONS (3)
  - PULMONARY EMBOLISM [None]
  - DYSPNOEA [None]
  - CHEST PAIN [None]
